FAERS Safety Report 5928800-7 (Version None)
Quarter: 2008Q4

REPORT INFORMATION
  Report Type: 
  Country: None (occurrence: None)
  Receive Date: 20081021
  Receipt Date: 20080815
  Transmission Date: 20090506
  Serious: Yes (Hospitalization)
  Sender: FDA-Public Use
  Company Number: CL001182008

PATIENT
  Age: 28 Year
  Sex: Female

DRUGS (1)
  1. CIPROFLOXACIN [Suspect]
     Indication: URINARY TRACT INFECTION
     Dosage: 800 MG, INTRAVENOUS
     Route: 042

REACTIONS (22)
  - ABDOMINAL PAIN [None]
  - C-REACTIVE PROTEIN INCREASED [None]
  - CHILLS [None]
  - DYSURIA [None]
  - HAEMATURIA [None]
  - HAEMOGLOBIN DECREASED [None]
  - MICTURITION URGENCY [None]
  - NAUSEA [None]
  - OEDEMA [None]
  - PLATELET COUNT DECREASED [None]
  - PRURITUS [None]
  - PYREXIA [None]
  - PYURIA [None]
  - RASH ERYTHEMATOUS [None]
  - RED BLOOD CELL SEDIMENTATION RATE INCREASED [None]
  - RESPIRATORY RATE INCREASED [None]
  - SWELLING [None]
  - SYNOVIAL FLUID ANALYSIS ABNORMAL [None]
  - TENDERNESS [None]
  - TENOSYNOVITIS [None]
  - URTICARIA [None]
  - VOMITING [None]
